FAERS Safety Report 5249572-8 (Version None)
Quarter: 2007Q1

REPORT INFORMATION
  Report Type: 
  Country: None (occurrence: None)
  Receive Date: 20070228
  Receipt Date: 20060420
  Transmission Date: 20070707
  Serious: No
  Sender: FDA-Public Use
  Company Number: US-GLAXOSMITHKLINE-A0597403A

PATIENT
  Sex: Female

DRUGS (2)
  1. IMITREX [Suspect]
     Indication: MIGRAINE
     Route: 065
  2. HEART MEDICATION [Concomitant]

REACTIONS (6)
  - ARRHYTHMIA [None]
  - CARDIAC DISORDER [None]
  - DYSPNOEA [None]
  - FEELING ABNORMAL [None]
  - MITRAL VALVE PROLAPSE [None]
  - PHARMACEUTICAL PRODUCT COMPLAINT [None]
